FAERS Safety Report 23717077 (Version 1)
Quarter: 2024Q2

REPORT INFORMATION
  Report Type: Spontaneous
  Country: GB (occurrence: GB)
  Receive Date: 20240408
  Receipt Date: 20240408
  Transmission Date: 20240716
  Serious: Yes (Hospitalization)
  Sender: FDA-Public Use
  Company Number: GB-MHRA-TPP30938619C206709YC1710927310190

PATIENT
  Age: 47 Year
  Sex: Female
  Weight: 60 kg

DRUGS (19)
  1. CITALOPRAM HYDROBROMIDE [Suspect]
     Active Substance: CITALOPRAM HYDROBROMIDE
     Indication: Product used for unknown indication
     Dosage: 20 MILLIGRAM, ONCE A DAY (TAKE ONE TABLET EACH MORNING)
     Route: 048
     Dates: start: 20240221
  2. ACAMPROSATE CALCIUM [Concomitant]
     Active Substance: ACAMPROSATE CALCIUM
     Indication: Product used for unknown indication
     Dosage: 2 DOSAGE FORM, 3 TIMES A DAY (TAKE TWO TABLETS THREE TIMES A DAY)
     Route: 065
     Dates: start: 20230718
  3. ACYCLOVIR [Concomitant]
     Active Substance: ACYCLOVIR
     Indication: Product used for unknown indication
     Dosage: 1 DOSAGE FORM, 5 TIMES A DAY
     Route: 065
     Dates: start: 20220117
  4. BETAMETHASONE VALERATE [Concomitant]
     Active Substance: BETAMETHASONE VALERATE
     Indication: Product used for unknown indication
     Dosage: 1 DOSAGE FORM, TWO TIMES A DAY (APPLY TWICE DAILY MAXIMUM TWICE A DAY)
     Route: 065
     Dates: start: 20240320
  5. Cetraben [Concomitant]
     Indication: Product used for unknown indication
     Dosage: 1 DOSAGE FORM, TWO TIMES A DAY (APPLY TWICE DAILY TO SCALP.)
     Route: 065
     Dates: start: 20240320
  6. CYCLIZINE [Concomitant]
     Active Substance: CYCLIZINE
     Indication: Nausea
     Dosage: UNK UNK, AS NECESSARY (TO BE TAKEN THREE TIMES DAILY WHEN REQUIRED FOR NAUSEA)
     Route: 065
     Dates: start: 20240320
  7. DERMOL [Concomitant]
     Active Substance: BENZALKONIUM CHLORIDE\CHLORHEXIDINE HYDROCHLORIDE\ISOPROPYL MYRISTATE\PARAFFIN
     Indication: Product used for unknown indication
     Dosage: UNK (USE AS DIRECTED)
     Route: 065
     Dates: start: 20220107
  8. ESTRADIOL [Concomitant]
     Active Substance: ESTRADIOL
     Indication: Product used for unknown indication
     Dosage: 1 DOSAGE FORM  TWO TIMES A  WEEK (APPLY ONE EVOREL 50 PATCH TWICE WEEKLY FOR 2 WEEKS, WITHIN 5 DAYS
     Route: 065
     Dates: start: 20240320
  9. HYDROCORTISONE [Concomitant]
     Active Substance: HYDROCORTISONE
     Indication: Product used for unknown indication
     Dosage: 1 DOSAGE FORM, TWO TIMES A DAY (APPLY TO BE TAKEN TWICE DAILY TO EYE LIDS FOR T)
     Route: 065
     Dates: start: 20240108
  10. ISPAGHULA EXTRACT\PSYLLIUM [Concomitant]
     Active Substance: HERBALS\PLANTAGO OVATA SEED\PLANTAGO SEED
     Indication: Product used for unknown indication
     Dosage: 1 DOSAGE FORM, ONCE A DAY
     Route: 065
     Dates: start: 20220107
  11. KETOCONAZOLE [Concomitant]
     Active Substance: KETOCONAZOLE
     Indication: Product used for unknown indication
     Dosage: 1 DOSAGE FORM TWO TIMES A WEEK
     Route: 065
     Dates: start: 20240129
  12. POLYETHYLENE GLYCOLS [Concomitant]
     Active Substance: POLYETHYLENE GLYCOLS
     Indication: Product used for unknown indication
     Dosage: 1 DOSAGE FORM, ONCE A DAY (TAKE ONE SACHET DAILY (WHILE ISPAGHULA IS UNAVA)
     Route: 065
     Dates: start: 20231222
  13. MEBEVERINE HYDROCHLORIDE [Concomitant]
     Active Substance: MEBEVERINE HYDROCHLORIDE
     Indication: Product used for unknown indication
     Dosage: 1 DOSAGE FORM, 3 TIMES A DAY
     Route: 065
     Dates: start: 20220107
  14. MIRTAZAPINE [Concomitant]
     Active Substance: MIRTAZAPINE
     Indication: Product used for unknown indication
     Dosage: 1 DOSAGE FORM, ONCE A DAY (TAKE ONE TABLET EACH NIGHT)
     Route: 065
     Dates: start: 20231228
  15. ESTRADIOL [Concomitant]
     Active Substance: ESTRADIOL
     Indication: Product used for unknown indication
     Dosage: 3 DOSAGE FORM, ONCE A DAY (APPLY THREE PUMPS ONCE DAILY)
     Route: 065
     Dates: start: 20240221
  16. OMEPRAZOLE [Concomitant]
     Active Substance: OMEPRAZOLE
     Indication: Product used for unknown indication
     Dosage: 1 DOSAGE FORM, ONCE A DAY
     Route: 065
     Dates: start: 20220107
  17. PROGESTERONE [Concomitant]
     Active Substance: PROGESTERONE
     Indication: Product used for unknown indication
     Dosage: 2 DOSAGE FORM, ONCE A DAY (TAKE TWO CAPSULES ONCE DAILY AT BEDTIME FOR TWE)
     Route: 065
     Dates: start: 20240221
  18. THIAMINE [Concomitant]
     Active Substance: THIAMINE
     Indication: Product used for unknown indication
     Dosage: 1 DOSAGE FORM, 3 TIMES A DAY (TAKE ONE THREE TIMES A DAY)
     Route: 065
     Dates: start: 20230718
  19. ZOPICLONE [Concomitant]
     Active Substance: ZOPICLONE
     Indication: Product used for unknown indication
     Dosage: 1 DOSAGE FORM, AS NECESSARY (TAKE 1 TABLET (IF NEEDED) AT 22HRS FOR SLEEP, N)
     Route: 065
     Dates: start: 20240320

REACTIONS (6)
  - Bruxism [Unknown]
  - Hyperhidrosis [Unknown]
  - Speech disorder [Unknown]
  - Confusional state [Recovered/Resolved]
  - Palpitations [Recovered/Resolved]
  - Mydriasis [Recovered/Resolved]

NARRATIVE: CASE EVENT DATE: 20240229
